FAERS Safety Report 16756699 (Version 2)
Quarter: 2019Q4

REPORT INFORMATION
  Report Type: Spontaneous
  Country: CA (occurrence: CA)
  Receive Date: 20190829
  Receipt Date: 20191210
  Transmission Date: 20200122
  Serious: Yes (Other)
  Sender: FDA-Public Use
  Company Number: CA-ALLERGAN-1934307US

PATIENT
  Sex: Female
  Weight: 65.76 kg

DRUGS (1)
  1. BOTOX COSMETIC [Suspect]
     Active Substance: ONABOTULINUMTOXINA
     Indication: SKIN WRINKLING
     Dosage: UNK
     Route: 065
     Dates: start: 201907, end: 201907

REACTIONS (6)
  - Breast neoplasm [Unknown]
  - Malaise [Unknown]
  - Pneumonia [Unknown]
  - Viral pharyngitis [Unknown]
  - Influenza like illness [Unknown]
  - False positive investigation result [Unknown]
